FAERS Safety Report 22872950 (Version 2)
Quarter: 2024Q2

REPORT INFORMATION
  Report Type: Spontaneous
  Country: US (occurrence: US)
  Receive Date: 20230828
  Receipt Date: 20240522
  Transmission Date: 20240716
  Serious: No
  Sender: FDA-Public Use
  Company Number: US-MAYNE PHARMA-2023MYN000512

PATIENT

DRUGS (4)
  1. FABIOR [Suspect]
     Active Substance: TAZAROTENE
     Indication: Acne
     Dosage: UNK
     Route: 061
     Dates: start: 20230626
  2. SMARTY PANTS KIDS COMPLETE [Concomitant]
     Indication: Product used for unknown indication
     Dosage: UNK
     Route: 048
  3. WINLEVI [Concomitant]
     Active Substance: CLASCOTERONE
     Indication: Acne
     Dosage: UNK
     Route: 065
  4. RETIN-A [Concomitant]
     Active Substance: TRETINOIN
     Indication: Acne
     Dosage: UNK
     Route: 065

REACTIONS (6)
  - Application site reaction [Not Recovered/Not Resolved]
  - Chemical burn [Not Recovered/Not Resolved]
  - Erythema [Not Recovered/Not Resolved]
  - Skin irritation [Not Recovered/Not Resolved]
  - Urticaria [Not Recovered/Not Resolved]
  - Pain [Not Recovered/Not Resolved]

NARRATIVE: CASE EVENT DATE: 20230709
